FAERS Safety Report 7766567-0 (Version None)
Quarter: 2011Q3

REPORT INFORMATION
  Report Type: 
  Country: None (occurrence: None)
  Receive Date: 20110922
  Receipt Date: 20090701
  Transmission Date: 20111222
  Serious: No
  Sender: FDA-Public Use
  Company Number: 2009BI020312

PATIENT
  Sex: Female

DRUGS (3)
  1. CLARITIN [Concomitant]
     Indication: PREMEDICATION
  2. TYSABRI [Suspect]
     Indication: MULTIPLE SCLEROSIS
     Route: 042
     Dates: start: 20090527
  3. TYLENOL-500 [Concomitant]
     Indication: PREMEDICATION

REACTIONS (9)
  - NAUSEA [None]
  - FATIGUE [None]
  - HEADACHE [None]
  - CATHETER SITE HAEMATOMA [None]
  - SOMNOLENCE [None]
  - VERTIGO [None]
  - HYPOAESTHESIA [None]
  - DIZZINESS [None]
  - MULTIPLE SCLEROSIS RELAPSE [None]
